FAERS Safety Report 4380733-6 (Version None)
Quarter: 2004Q2

REPORT INFORMATION
  Report Type: 
  Country: None (occurrence: None)
  Receive Date: 20040618
  Receipt Date: 20040126
  Transmission Date: 20050107
  Serious: Yes (Other)
  Sender: FDA-Public Use
  Company Number: PHFR2004GB00845

PATIENT
  Age: 16 Year
  Sex: Male

DRUGS (7)
  1. NEORAL [Suspect]
     Indication: AUTOIMMUNE HEPATITIS
     Dosage: 100 MG, BID
     Dates: start: 20020601, end: 20030901
  2. NEORAL [Suspect]
     Dosage: 50 MG, BID
     Dates: start: 20030901, end: 20031201
  3. NEORAL [Suspect]
     Dosage: 25 MG, BID
     Dates: start: 20031201
  4. PREDNISOLONE [Concomitant]
     Indication: AUTOIMMUNE HEPATITIS
     Dosage: 5 MG, QD
     Route: 048
  5. PROPRANOLOL [Concomitant]
     Dosage: 10 MG, TID
     Route: 048
  6. OMEPRAZOLE [Concomitant]
     Dosage: 20 MG, QD
     Route: 048
  7. PENICILLIN V [Concomitant]
     Dosage: 250 MG, BID
     Route: 048

REACTIONS (1)
  - HYPERCALCAEMIA [None]
